FAERS Safety Report 23441249 (Version 3)
Quarter: 2024Q2

REPORT INFORMATION
  Report Type: Spontaneous
  Country: US (occurrence: US)
  Receive Date: 20240125
  Receipt Date: 20240423
  Transmission Date: 20240716
  Serious: Yes (Death, Hospitalization)
  Sender: FDA-Public Use
  Company Number: US-TEVA-VS-3149193

PATIENT
  Age: 67 Year
  Sex: Male
  Weight: 86.18 kg

DRUGS (22)
  1. HYDROCHLOROTHIAZIDE\VALSARTAN [Suspect]
     Active Substance: HYDROCHLOROTHIAZIDE\VALSARTAN
     Indication: Hypertension
     Dosage: 320/12.5MG, ACTAVIS
     Route: 048
     Dates: start: 20170715, end: 20171012
  2. HYDROCHLOROTHIAZIDE\VALSARTAN [Suspect]
     Active Substance: HYDROCHLOROTHIAZIDE\VALSARTAN
     Indication: Hypertension
     Dosage: 320/12.5MG, ACTAVIS
     Route: 048
     Dates: start: 20180219, end: 20180520
  3. IRBESARTAN [Suspect]
     Active Substance: IRBESARTAN
     Indication: Hypertension
     Dosage: PRISTON AND SOLCO
     Route: 065
     Dates: start: 20180719, end: 20180906
  4. IRBESARTAN [Suspect]
     Active Substance: IRBESARTAN
     Indication: Hypertension
     Dosage: PRISTON AND SOLCO
     Route: 065
     Dates: start: 20180907, end: 20190417
  5. VALSARTAN [Suspect]
     Active Substance: VALSARTAN
     Indication: Hypertension
     Dosage: SANDOZ
     Route: 048
     Dates: start: 20140826, end: 20150101
  6. IRBESARTAN [Suspect]
     Active Substance: IRBESARTAN
     Indication: Hypertension
     Route: 048
     Dates: start: 20200429, end: 20200711
  7. IRBESARTAN [Suspect]
     Active Substance: IRBESARTAN
     Indication: Hypertension
     Dosage: CAMBER
     Route: 048
     Dates: start: 20190418, end: 20190714
  8. IRBESARTAN [Suspect]
     Active Substance: IRBESARTAN
     Indication: Hypertension
     Route: 048
     Dates: start: 20191018, end: 20191203
  9. IRBESARTAN [Suspect]
     Active Substance: IRBESARTAN
     Indication: Hypertension
     Route: 048
     Dates: start: 20191204, end: 20200215
  10. IRBESARTAN [Suspect]
     Active Substance: IRBESARTAN
     Indication: Hypertension
     Dosage: MACLEODS
     Route: 048
     Dates: start: 20200216, end: 20200428
  11. IRBESARTAN [Suspect]
     Active Substance: IRBESARTAN
     Indication: Hypertension
     Dosage: MACLEODS
     Route: 048
     Dates: start: 20200712, end: 20211213
  12. HYDROCHLOROTHIAZIDE\VALSARTAN [Suspect]
     Active Substance: HYDROCHLOROTHIAZIDE\VALSARTAN
     Indication: Hypertension
     Dosage: 320/12.5MG, AUROBINDO
     Route: 048
     Dates: start: 20151204, end: 20170714
  13. HYDROCHLOROTHIAZIDE\VALSARTAN [Suspect]
     Active Substance: HYDROCHLOROTHIAZIDE\VALSARTAN
     Indication: Hypertension
     Dosage: 320/12.5MG, AUROBINDO
     Route: 048
     Dates: start: 20171013, end: 20180713
  14. HYDROCHLOROTHIAZIDE [Concomitant]
     Active Substance: HYDROCHLOROTHIAZIDE
  15. METFORMIN [Concomitant]
     Active Substance: METFORMIN HYDROCHLORIDE
     Indication: Product used for unknown indication
     Route: 048
  16. VIAGRA [Concomitant]
     Active Substance: SILDENAFIL CITRATE
     Indication: Erectile dysfunction
     Dosage: 1 TAB;ET DAILY AS NEEDED
     Route: 048
  17. FENOFIBRATE [Concomitant]
     Active Substance: FENOFIBRATE
  18. LIPITOR [Concomitant]
     Active Substance: ATORVASTATIN CALCIUM
     Dosage: TAKE 1 TABLET (10 MG TOTAL) BY MOUTH AT BEDTIME
     Route: 048
  19. PIOGLITAZONE [Concomitant]
     Active Substance: PIOGLITAZONE
  20. TRULICITY [Concomitant]
     Active Substance: DULAGLUTIDE
     Dosage: PEN, 1.5/0.5
  21. AVAPRO [Concomitant]
     Active Substance: IRBESARTAN
     Route: 048
  22. DIOVAN [Concomitant]
     Active Substance: VALSARTAN
     Indication: Hypertension

REACTIONS (12)
  - Hepatic cancer stage IV [Fatal]
  - Nausea [Unknown]
  - Metabolic encephalopathy [Unknown]
  - Hydronephrosis [Unknown]
  - Peritonitis [Unknown]
  - Gastric cancer stage IV [Fatal]
  - Anaemia [Unknown]
  - Sepsis [Unknown]
  - Liver function test increased [Unknown]
  - Fatigue [Unknown]
  - Weight decreased [Unknown]
  - Urinary retention [Unknown]

NARRATIVE: CASE EVENT DATE: 20221017
